FAERS Safety Report 9496740 (Version 1)
Quarter: 2013Q3

REPORT INFORMATION
  Report Type: Spontaneous
  Country: US (occurrence: None)
  Receive Date: 20130830
  Receipt Date: 20130830
  Transmission Date: 20140515
  Serious: Yes (Hospitalization, Other)
  Sender: FDA-Public Use
  Company Number: 2013243471

PATIENT
  Sex: Female

DRUGS (5)
  1. LANSOPRAZOLE (LANSOPRAZOLE) [Suspect]
     Route: 048
  2. QUETIAPINE FUMARATE [Suspect]
     Indication: CONFUSIONAL STATE
     Route: 048
  3. ATENOLOL (ATENOLOL) [Concomitant]
  4. WARFARIN (WARFARIN) [Concomitant]
  5. NITROFURANTOIN [Concomitant]

REACTIONS (3)
  - Inappropriate antidiuretic hormone secretion [None]
  - Condition aggravated [None]
  - Confusional state [None]
